FAERS Safety Report 5935004-0 (Version None)
Quarter: 2008Q4

REPORT INFORMATION
  Report Type: 
  Country: None (occurrence: None)
  Receive Date: 20081029
  Receipt Date: 20081029
  Transmission Date: 20090506
  Serious: No
  Sender: FDA-Public Use
  Company Number: None

PATIENT
  Sex: Female
  Weight: 53.0709 kg

DRUGS (6)
  1. BONIVA [Suspect]
     Indication: OSTEOPOROSIS
     Dosage: 3MG EVERY 3 MO. IV
     Route: 042
     Dates: start: 20060629
  2. BONIVA [Suspect]
     Indication: OSTEOPOROSIS
     Dosage: 3MG EVERY 3 MO. IV
     Route: 042
     Dates: start: 20061012
  3. BONIVA [Suspect]
     Indication: OSTEOPOROSIS
     Dosage: 3MG EVERY 3 MO. IV
     Route: 042
     Dates: start: 20070125
  4. BONIVA [Suspect]
     Indication: OSTEOPOROSIS
     Dosage: 3MG EVERY 3 MO. IV
     Route: 042
     Dates: start: 20070426
  5. BONIVA [Suspect]
     Indication: OSTEOPOROSIS
     Dosage: 3MG EVERY 3 MO. IV
     Route: 042
     Dates: start: 20070726
  6. BONIVA [Suspect]
     Indication: OSTEOPOROSIS
     Dosage: 3MG EVERY 3 MO. IV
     Route: 042
     Dates: start: 20071012

REACTIONS (1)
  - ATRIAL FIBRILLATION [None]
